FAERS Safety Report 18162315 (Version 1)
Quarter: 2020Q3

REPORT INFORMATION
  Report Type: Spontaneous
  Country: CA (occurrence: CA)
  Receive Date: 20200818
  Receipt Date: 20200818
  Transmission Date: 20201103
  Serious: Yes (Hospitalization, Other)
  Sender: FDA-Public Use
  Company Number: CA-ACCORD-195708

PATIENT
  Age: 68 Year
  Sex: Female

DRUGS (18)
  1. ANETHOLE [Concomitant]
     Active Substance: ANETHOLE
  2. HYDROMORPHONE/HYDROMORPHONE HYDROCHLORIDE [Concomitant]
     Active Substance: HYDROMORPHONE
  3. LEVOTHYROXINE. [Concomitant]
     Active Substance: LEVOTHYROXINE
  4. MORPHINE [Concomitant]
     Active Substance: MORPHINE
  5. PANTOPRAZOLE [Concomitant]
     Active Substance: PANTOPRAZOLE
  6. SITAGLIPTIN/SITAGLIPTIN PHOSPHATE [Concomitant]
     Active Substance: SITAGLIPTIN PHOSPHATE
  7. AMLODIPINE [Concomitant]
     Active Substance: AMLODIPINE BESYLATE
  8. FLUTICASONE. [Concomitant]
     Active Substance: FLUTICASONE
  9. GABAPENTIN. [Concomitant]
     Active Substance: GABAPENTIN
  10. AMLODIPINE [Suspect]
     Active Substance: AMLODIPINE BESYLATE
     Indication: PRODUCT USED FOR UNKNOWN INDICATION
     Route: 048
  11. CLONIDINE. [Concomitant]
     Active Substance: CLONIDINE
  12. CYCLOBENZAPRINE. [Concomitant]
     Active Substance: CYCLOBENZAPRINE
  13. HYOSCINE [Concomitant]
     Active Substance: SCOPOLAMINE
  14. MYRBETRIQ [Concomitant]
     Active Substance: MIRABEGRON
  15. PROPRANOLOL [Concomitant]
     Active Substance: PROPRANOLOL HYDROCHLORIDE
  16. VENTOLIN [Concomitant]
     Active Substance: ALBUTEROL SULFATE
  17. TEVA?FUROSEMIDE [Suspect]
     Active Substance: FUROSEMIDE
     Indication: PRODUCT USED FOR UNKNOWN INDICATION
     Route: 048
  18. TYLENOL [Concomitant]
     Active Substance: ACETAMINOPHEN

REACTIONS (1)
  - Acute kidney injury [Recovering/Resolving]
